FAERS Safety Report 20011938 (Version 5)
Quarter: 2022Q1

REPORT INFORMATION
  Report Type: Report from Study
  Country: US (occurrence: US)
  Receive Date: 20211028
  Receipt Date: 20220308
  Transmission Date: 20220423
  Serious: Yes (Hospitalization)
  Sender: FDA-Public Use
  Company Number: US-BAXTER-2021BAX033377

PATIENT
  Age: 73 Year
  Sex: Male
  Weight: 73 kg

DRUGS (41)
  1. CYCLOPHOSPHAMIDE [Suspect]
     Active Substance: CYCLOPHOSPHAMIDE
     Indication: Diffuse large B-cell lymphoma
     Dosage: PAST MEDICATION
     Route: 042
     Dates: start: 20100902, end: 201101
  2. CYCLOPHOSPHAMIDE [Suspect]
     Active Substance: CYCLOPHOSPHAMIDE
     Dosage: DOSAGE FORM- INJECTION FOR INFUSION
     Route: 042
     Dates: start: 20210812, end: 20210814
  3. DOXIL [Suspect]
     Active Substance: DOXORUBICIN HYDROCHLORIDE
     Indication: B-cell lymphoma
     Route: 065
     Dates: start: 20100902, end: 201101
  4. FLUDARABINE [Suspect]
     Active Substance: FLUDARABINE PHOSPHATE
     Indication: Diffuse large B-cell lymphoma
     Dosage: DOSAGE FORM- INJECTION FOR INFUSION
     Route: 042
     Dates: start: 20210812, end: 20210814
  5. ALENDRONATE [Concomitant]
     Active Substance: ALENDRONATE SODIUM
     Indication: Prophylaxis
     Route: 048
  6. ALLOPURINOL [Concomitant]
     Active Substance: ALLOPURINOL
     Indication: Prophylaxis
     Route: 048
  7. AMITRIPTYLINE [Concomitant]
     Active Substance: AMITRIPTYLINE
     Indication: Prophylaxis
     Route: 048
  8. CALCIUM CARBONATE [Concomitant]
     Active Substance: CALCIUM CARBONATE
     Indication: Prophylaxis
     Route: 048
  9. CLOBETASOL [Concomitant]
     Active Substance: CLOBETASOL
     Indication: Prophylaxis
     Dosage: 0.05% X PRN, TOP
     Route: 065
  10. ESOMEPRAZOLE [Concomitant]
     Active Substance: ESOMEPRAZOLE
     Indication: Prophylaxis
     Route: 048
  11. FLUDROCORTISONE [Concomitant]
     Active Substance: FLUDROCORTISONE
     Indication: Prophylaxis
     Route: 048
     Dates: start: 20210606
  12. GABAPENTIN [Concomitant]
     Active Substance: GABAPENTIN
     Indication: Post herpetic neuralgia
     Route: 048
     Dates: start: 20210512
  13. GABAPENTIN [Concomitant]
     Active Substance: GABAPENTIN
     Indication: Adverse event
     Route: 048
     Dates: start: 20211011, end: 20211021
  14. LOSARTAN [Concomitant]
     Active Substance: LOSARTAN
     Indication: Product used for unknown indication
     Route: 048
  15. METFORMIN [Concomitant]
     Active Substance: METFORMIN HYDROCHLORIDE
     Indication: Type 2 diabetes mellitus
     Route: 048
  16. SULFAMETHOXAZOLE\TRIMETHOPRIM [Concomitant]
     Active Substance: SULFAMETHOXAZOLE\TRIMETHOPRIM
     Indication: Prophylaxis
     Dosage: 800-160 MG
     Route: 048
  17. aluminum and magnesium hydroxide-simethicone [Concomitant]
     Indication: Prophylaxis
     Route: 048
     Dates: start: 20210917, end: 20210924
  18. DAPTOMYCIN [Concomitant]
     Active Substance: DAPTOMYCIN
     Indication: Prophylaxis
     Dosage: 400MG X PRN
     Route: 042
     Dates: start: 20210919, end: 20210923
  19. MEGLUMINE AMIDOTRIZOATE [Concomitant]
     Indication: Ultrasound abdomen
     Route: 048
     Dates: start: 20210916, end: 20210916
  20. ENOXAPARIN [Concomitant]
     Active Substance: ENOXAPARIN
     Indication: Deep vein thrombosis
     Dosage: 1.5, 40 MG/KG X 1 X 2 DAYS
     Route: 058
     Dates: start: 20210914, end: 20210924
  21. VALACYCLOVIR [Concomitant]
     Active Substance: VALACYCLOVIR HYDROCHLORIDE
     Indication: Prophylaxis
     Route: 048
     Dates: start: 20210812
  22. MIDODRINE [Concomitant]
     Active Substance: MIDODRINE
     Indication: Orthostatic hypotension
     Route: 048
  23. GLUCAGON [Concomitant]
     Active Substance: GLUCAGON
     Indication: Type 2 diabetes mellitus
     Route: 030
     Dates: start: 20210812, end: 20210924
  24. HYDRALAZINE [Concomitant]
     Active Substance: HYDRALAZINE HYDROCHLORIDE
     Indication: Hypertension
     Route: 048
     Dates: start: 20210922, end: 20210922
  25. HYDROCORTISONE [Concomitant]
     Active Substance: HYDROCORTISONE
     Indication: Eosinophilic pustular folliculitis
     Route: 061
     Dates: start: 20210912, end: 20210924
  26. INSULIN GLARGINE [Concomitant]
     Active Substance: INSULIN GLARGINE
     Indication: Type 2 diabetes mellitus
     Dosage: 1 TO 10 PRESSOR UNITS
     Route: 058
     Dates: start: 20210421, end: 20210924
  27. LEVETIRACETAM [Concomitant]
     Active Substance: LEVETIRACETAM
     Indication: Prophylaxis
     Route: 065
     Dates: start: 20210812, end: 20210923
  28. MAGNESIUM OXIDE [Concomitant]
     Active Substance: MAGNESIUM OXIDE
     Indication: Mineral supplementation
     Dosage: 800 (9/08) 400 (9/17) 400 (9/22) MG
     Route: 048
     Dates: start: 20210908, end: 20210922
  29. MAGNESIUM OXIDE [Concomitant]
     Active Substance: MAGNESIUM OXIDE
     Indication: Hypomagnesaemia
  30. MAGNESIUM SULFATE [Concomitant]
     Active Substance: MAGNESIUM SULFATE
     Indication: Mineral supplementation
     Dosage: 1 (8/14) 2 (9/12-9/23) G
     Route: 042
     Dates: start: 20210814, end: 20210923
  31. MAGNESIUM SULFATE [Concomitant]
     Active Substance: MAGNESIUM SULFATE
     Indication: Hypomagnesaemia
  32. OLANZAPINE [Concomitant]
     Active Substance: OLANZAPINE
     Indication: Substance-induced psychotic disorder
     Dosage: PRN
     Route: 048
     Dates: start: 20210904, end: 20210924
  33. PANTOPRAZOLE [Concomitant]
     Active Substance: PANTOPRAZOLE
     Indication: Prophylaxis
     Route: 048
     Dates: start: 20210812, end: 20210924
  34. POTASSIUM CHLORIDE [Concomitant]
     Active Substance: POTASSIUM CHLORIDE
     Indication: Prophylaxis
     Route: 048
     Dates: start: 20210814, end: 20210923
  35. SODIUM CHLORIDE [Concomitant]
     Active Substance: SODIUM CHLORIDE
     Indication: Prophylaxis
     Dosage: PRN
     Route: 042
     Dates: start: 20210812, end: 20210921
  36. TBO-FILGRASTIM [Concomitant]
     Active Substance: TBO-FILGRASTIM
     Indication: Neutrophil count decreased
     Dosage: PRN
     Route: 058
     Dates: start: 20210910, end: 20210916
  37. TRAMADOL [Concomitant]
     Active Substance: TRAMADOL
     Indication: Post herpetic neuralgia
     Dosage: 25 (8/21) 50 (9/11-9/24) MG
     Route: 048
     Dates: start: 20210821, end: 20210924
  38. TRAMADOL [Concomitant]
     Active Substance: TRAMADOL
     Indication: Aggression
  39. TRIAMCINOLONE [Concomitant]
     Active Substance: TRIAMCINOLONE
     Indication: Prophylaxis
     Route: 061
     Dates: start: 20210912, end: 20210912
  40. VANCOMYCIN [Concomitant]
     Active Substance: VANCOMYCIN
     Indication: Prophylaxis
     Dosage: 1000 (8/28-9/19) 1250 (9/15-9/17) MG
     Route: 042
     Dates: start: 20210828, end: 20210919
  41. VITAMIN B12 [Concomitant]
     Active Substance: CYANOCOBALAMIN
     Indication: Supplementation therapy
     Route: 048
     Dates: start: 20210820

REACTIONS (1)
  - Mental status changes [Recovered/Resolved]

NARRATIVE: CASE EVENT DATE: 20211011
